FAERS Safety Report 11453757 (Version 1)
Quarter: 2015Q3

REPORT INFORMATION
  Report Type: Spontaneous
  Country: US (occurrence: US)
  Receive Date: 20150831
  Receipt Date: 20150831
  Transmission Date: 20151125
  Serious: No
  Sender: FDA-Public Use
  Company Number: US-ELI_LILLY_AND_COMPANY-US201001003609

PATIENT
  Sex: Male

DRUGS (3)
  1. CYMBALTA [Suspect]
     Active Substance: DULOXETINE HYDROCHLORIDE
     Indication: ANXIETY
     Dosage: 60 MG, DAILY (1/D)
     Route: 048
  2. CYMBALTA [Suspect]
     Active Substance: DULOXETINE HYDROCHLORIDE
     Dosage: 60 MG, QOD
     Route: 048
  3. XANAX [Concomitant]
     Active Substance: ALPRAZOLAM

REACTIONS (18)
  - Intentional product misuse [Unknown]
  - Nightmare [Unknown]
  - Panic attack [Unknown]
  - Nausea [Unknown]
  - Feeling abnormal [Unknown]
  - Memory impairment [Unknown]
  - Retching [Unknown]
  - Dizziness [Unknown]
  - Constipation [Unknown]
  - Cognitive disorder [Unknown]
  - Drug withdrawal syndrome [Unknown]
  - Paraesthesia [Unknown]
  - Anxiety [Unknown]
  - Vertigo [Unknown]
  - Fatigue [Unknown]
  - Hyperhidrosis [Unknown]
  - Irritability [Unknown]
  - Headache [Unknown]
